FAERS Safety Report 24068341 (Version 1)
Quarter: 2024Q3

REPORT INFORMATION
  Report Type: Spontaneous
  Country: CN (occurrence: CN)
  Receive Date: 20240710
  Receipt Date: 20240710
  Transmission Date: 20241016
  Serious: No
  Sender: ROCHE
  Company Number: CN-ROCHE-3492306

PATIENT
  Sex: Female

DRUGS (1)
  1. ROZLYTREK [Suspect]
     Active Substance: ENTRECTINIB
     Indication: Gastric cancer
     Route: 065
     Dates: start: 202312

REACTIONS (2)
  - Gastrointestinal disorder [Not Recovered/Not Resolved]
  - Antibody test positive [Not Recovered/Not Resolved]
